FAERS Safety Report 24292941 (Version 1)
Quarter: 2024Q3

REPORT INFORMATION
  Report Type: Spontaneous
  Country: US (occurrence: None)
  Receive Date: 20240906
  Receipt Date: 20240906
  Transmission Date: 20241016
  Serious: No
  Sender: DOMPE FARMACEUTICI
  Company Number: US-FARMAPROD-202311-3288

PATIENT
  Age: 77 Year
  Sex: Male

DRUGS (5)
  1. OXERVATE [Suspect]
     Active Substance: CENEGERMIN-BKBJ
     Indication: Neurotrophic keratopathy
     Route: 047
     Dates: start: 20231101
  2. VITAMIN C [Concomitant]
     Active Substance: ASCORBIC ACID
  3. VITAMINS [Concomitant]
     Active Substance: VITAMINS
  4. TRADJENTA [Concomitant]
     Active Substance: LINAGLIPTIN
  5. METFORMIN [Concomitant]
     Active Substance: METFORMIN HYDROCHLORIDE
     Dosage: EXTENDED RELEASE; GASTRIC.

REACTIONS (4)
  - Wrong technique in product usage process [Unknown]
  - Headache [Recovered/Resolved]
  - Product dose omission issue [Unknown]
  - Nasal dryness [Unknown]

NARRATIVE: CASE EVENT DATE: 20231101
